FAERS Safety Report 8510847 (Version 4)
Quarter: 2013Q4

REPORT INFORMATION
  Report Type: Spontaneous
  Country: JP (occurrence: JP)
  Receive Date: 20120413
  Receipt Date: 20131209
  Transmission Date: 20140711
  Serious: Yes (Hospitalization)
  Sender: FDA-Public Use
  Company Number: JP-EISAI INC-E7389-02279-SPO-JP

PATIENT
  Age: 60 Year
  Sex: Female
  Weight: 53 kg

DRUGS (6)
  1. HALAVEN [Suspect]
     Indication: BREAST CANCER
     Route: 041
     Dates: start: 20120116, end: 20120116
  2. HALAVEN [Suspect]
     Route: 041
     Dates: start: 20120124
  3. HYSRON-H [Concomitant]
     Indication: BREAST CANCER
     Route: 048
     Dates: start: 20120124
  4. PREGABALIN [Concomitant]
     Indication: HYPOAESTHESIA
     Route: 048
     Dates: start: 20120304
  5. LENDORMIN [Concomitant]
     Indication: INSOMNIA
     Route: 048
  6. ZOMETA [Concomitant]
     Indication: METASTASES TO BONE
     Route: 042
     Dates: start: 20120116, end: 20120306

REACTIONS (2)
  - Renal failure acute [Recovering/Resolving]
  - Sepsis [Recovering/Resolving]
